FAERS Safety Report 12984408 (Version 2)
Quarter: 2017Q1

REPORT INFORMATION
  Report Type: Spontaneous
  Country: US (occurrence: US)
  Receive Date: 20161129
  Receipt Date: 20170107
  Transmission Date: 20170428
  Serious: Yes (Other)
  Sender: FDA-Public Use
  Company Number: US-CELGENEUS-USA-2016116724

PATIENT
  Age: 80 Year
  Sex: Male
  Weight: 72.64 kg

DRUGS (1)
  1. REVLIMID [Suspect]
     Active Substance: LENALIDOMIDE
     Indication: MYELODYSPLASTIC SYNDROME
     Dosage: 5MG
     Route: 048
     Dates: start: 20161024

REACTIONS (7)
  - Pain in extremity [Not Recovered/Not Resolved]
  - Diarrhoea [Not Recovered/Not Resolved]
  - White blood cell count decreased [Unknown]
  - Rash macular [Unknown]
  - Platelet count decreased [Unknown]
  - Abdominal discomfort [Not Recovered/Not Resolved]
  - Constipation [Unknown]

NARRATIVE: CASE EVENT DATE: 2016
